FAERS Safety Report 23891051 (Version 2)
Quarter: 2024Q2

REPORT INFORMATION
  Report Type: Spontaneous
  Country: JP (occurrence: None)
  Receive Date: 20240523
  Receipt Date: 20240524
  Transmission Date: 20240715
  Serious: No
  Sender: FDA-Public Use
  Company Number: 2024A115714

PATIENT
  Age: 78 Year
  Sex: Male

DRUGS (3)
  1. DAPAGLIFLOZIN [Suspect]
     Active Substance: DAPAGLIFLOZIN
     Indication: Diabetes mellitus management
     Dosage: DOSE UNKNOWN
     Route: 048
     Dates: start: 20240502, end: 20240508
  2. ROSUVASTATIN [Concomitant]
     Active Substance: ROSUVASTATIN
     Dosage: DOSE UNKNOWN
  3. INSULIN NOS [Concomitant]
     Active Substance: INSULIN NOS
     Dosage: DOSE UNKNOWN
     Route: 042
     Dates: start: 20240501

REACTIONS (1)
  - Rash [Recovering/Resolving]

NARRATIVE: CASE EVENT DATE: 20240503
